FAERS Safety Report 10661165 (Version 1)
Quarter: 2014Q4

REPORT INFORMATION
  Report Type: Spontaneous
  Country: US (occurrence: None)
  Receive Date: 20141216
  Receipt Date: 20141216
  Transmission Date: 20150529
  Serious: Yes (Other)
  Sender: FDA-Public Use
  Company Number: None

PATIENT
  Age: 48 Year
  Sex: Female
  Weight: 93.44 kg

DRUGS (1)
  1. ADDERALL [Suspect]
     Active Substance: AMPHETAMINE ASPARTATE\AMPHETAMINE SULFATE\DEXTROAMPHETAMINE SACCHARATE\DEXTROAMPHETAMINE SULFATE
     Indication: ATTENTION DEFICIT/HYPERACTIVITY DISORDER
     Dosage: 3 PILLS
     Route: 048
     Dates: start: 20140902, end: 20141001

REACTIONS (10)
  - Fatigue [None]
  - Throat irritation [None]
  - Abdominal pain upper [None]
  - Impaired work ability [None]
  - Product substitution issue [None]
  - Drug ineffective [None]
  - Pyrexia [None]
  - Arthralgia [None]
  - Myalgia [None]
  - Disturbance in attention [None]

NARRATIVE: CASE EVENT DATE: 20140902
